FAERS Safety Report 12540046 (Version 2)
Quarter: 2016Q3

REPORT INFORMATION
  Report Type: Spontaneous
  Country: US (occurrence: US)
  Receive Date: 20160708
  Receipt Date: 20160725
  Transmission Date: 20161109
  Serious: Yes (Other)
  Sender: FDA-Public Use
  Company Number: US-SUN PHARMACEUTICAL INDUSTRIES LTD-2016US-119813

PATIENT
  Age: 32 Year
  Sex: Female

DRUGS (2)
  1. IFOSFAMIDE. [Suspect]
     Active Substance: IFOSFAMIDE
     Indication: ANGIOSARCOMA
     Dosage: FIRST CYCLE
     Route: 065
  2. DOXORUBICIN [Suspect]
     Active Substance: DOXORUBICIN
     Indication: ANGIOSARCOMA
     Dosage: FIRST CYCLE
     Route: 065

REACTIONS (4)
  - Hepatocellular injury [Not Recovered/Not Resolved]
  - Decreased appetite [Unknown]
  - Mucosal inflammation [Unknown]
  - Thrombocytopenia [Unknown]
